FAERS Safety Report 25347953 (Version 1)
Quarter: 2025Q2

REPORT INFORMATION
  Report Type: Spontaneous
  Country: US (occurrence: None)
  Receive Date: 20250522
  Receipt Date: 20250522
  Transmission Date: 20250716
  Serious: Yes (Other)
  Sender: FDA-CTU
  Company Number: None

PATIENT
  Age: 46 Year
  Sex: Female
  Weight: 72 kg

DRUGS (14)
  1. ZYRTEC [Suspect]
     Active Substance: CETIRIZINE HYDROCHLORIDE
     Indication: Rhinitis
     Dates: start: 20230601, end: 20240101
  2. PRISTIQ EXTENDED-RELEASE [Concomitant]
     Active Substance: DESVENLAFAXINE SUCCINATE
  3. VYVANSE [Concomitant]
     Active Substance: LISDEXAMFETAMINE DIMESYLATE
  4. DIAZEPAM [Concomitant]
     Active Substance: DIAZEPAM
  5. FLUTICASONE [Concomitant]
     Active Substance: FLUTICASONE
  6. Sameterol [Concomitant]
  7. ALBUTEROL [Concomitant]
     Active Substance: ALBUTEROL
  8. SINGULAIR [Concomitant]
     Active Substance: MONTELUKAST SODIUM
  9. IRON [Concomitant]
     Active Substance: IRON
  10. VITAMIN D NOS [Concomitant]
     Active Substance: CHOLECALCIFEROL\ERGOCALCIFEROL
  11. b12 [Concomitant]
  12. MAGNESIUM [Concomitant]
     Active Substance: MAGNESIUM
  13. ASIAN GINSENG [Concomitant]
     Active Substance: ASIAN GINSENG
  14. ZYRTEC [Concomitant]
     Active Substance: CETIRIZINE HYDROCHLORIDE

REACTIONS (5)
  - Pruritus [None]
  - Rash [None]
  - Sleep deficit [None]
  - Activities of daily living decreased [None]
  - Rhinitis [None]

NARRATIVE: CASE EVENT DATE: 20240101
